FAERS Safety Report 8910641 (Version 1)
Quarter: 2012Q4

REPORT INFORMATION
  Report Type: Spontaneous
  Country: UA (occurrence: None)
  Receive Date: 20121108
  Receipt Date: 20121108
  Transmission Date: 20130627
  Serious: Yes (Other)
  Sender: FDA-Public Use
  Company Number: 2012-7191

PATIENT
  Age: 44 Year
  Sex: Female
  Weight: 58 kg

DRUGS (4)
  1. DYSPORT [Suspect]
     Indication: GLABELLAR FROWN LINES
     Dosage: 97 units (97 Units, 1 in 1 Cycle (s))
     Route: 030
     Dates: start: 20121017, end: 20121017
  2. DYSPORT [Suspect]
     Indication: WRINKLES
     Dosage: 97 units (97 Units, 1 in 1 Cycle (s))
     Route: 030
     Dates: start: 20121017, end: 20121017
  3. DYSPORT [Suspect]
     Dosage: 97 units (97 Units, 1 in 1 Cycle (s))
     Route: 030
     Dates: start: 20121017, end: 20121017
  4. PARACETAMOL (PARACETAMOL) [Concomitant]

REACTIONS (3)
  - Drug ineffective [None]
  - Periorbital oedema [None]
  - Nasal oedema [None]
